FAERS Safety Report 6671592-7 (Version None)
Quarter: 2010Q2

REPORT INFORMATION
  Report Type: 
  Country: None (occurrence: None)
  Receive Date: 20100407
  Receipt Date: 20100326
  Transmission Date: 20101027
  Serious: Yes (Other)
  Sender: FDA-Public Use
  Company Number: JP-PFIZER INC-2010040243

PATIENT
  Age: 77 Year
  Sex: Female

DRUGS (1)
  1. GABAPEN [Suspect]
     Dosage: 1800 MG, 3X/DAY
     Route: 048

REACTIONS (2)
  - BLOOD POTASSIUM INCREASED [None]
  - DIPLOPIA [None]
